FAERS Safety Report 21130443 (Version 2)
Quarter: 2022Q3

REPORT INFORMATION
  Report Type: Report from Study
  Country: TR (occurrence: TR)
  Receive Date: 20220726
  Receipt Date: 20220810
  Transmission Date: 20221027
  Serious: Yes (Hospitalization)
  Sender: FDA-Public Use
  Company Number: TR-ABBVIE-22K-161-4480837-00

PATIENT
  Age: 70 Year
  Sex: Female
  Weight: 62 kg

DRUGS (2)
  1. CARBIDOPA\LEVODOPA [Suspect]
     Active Substance: CARBIDOPA\LEVODOPA
     Indication: Parkinson^s disease
     Dosage: MORNING DOSE (ML): 3.50 CONTINIOUS DOSE (ML): 1.40 EXTRA DOSE (ML): 0.50
     Route: 050
     Dates: start: 20210226
  2. CARBIDOPA\LEVODOPA [Suspect]
     Active Substance: CARBIDOPA\LEVODOPA

REACTIONS (1)
  - General physical health deterioration [Recovering/Resolving]

NARRATIVE: CASE EVENT DATE: 20220721
